FAERS Safety Report 6520574-4 (Version None)
Quarter: 2009Q4

REPORT INFORMATION
  Report Type: 
  Country: None (occurrence: None)
  Receive Date: 20091229
  Receipt Date: 20091218
  Transmission Date: 20100525
  Serious: Yes (Disabling)
  Sender: FDA-Public Use
  Company Number: CA-BRISTOL-MYERS SQUIBB COMPANY-14822225

PATIENT
  Age: 49 Year
  Sex: Female

DRUGS (3)
  1. AVAPRO [Suspect]
     Indication: HYPERTENSION
     Route: 048
     Dates: start: 20090315, end: 20090301
  2. COVERSYL [Concomitant]
  3. FENTANYL-100 [Concomitant]

REACTIONS (5)
  - BALANCE DISORDER [None]
  - HYPOAESTHESIA [None]
  - MUSCLE TWITCHING [None]
  - OEDEMA PERIPHERAL [None]
  - RASH [None]
